FAERS Safety Report 11623097 (Version 1)
Quarter: 2015Q4

REPORT INFORMATION
  Report Type: Spontaneous
  Country: US (occurrence: US)
  Receive Date: 20151013
  Receipt Date: 20151013
  Transmission Date: 20160304
  Serious: No
  Sender: FDA-Public Use
  Company Number: US-JNJFOC-20150315163

PATIENT
  Age: 86 Year
  Sex: Female
  Weight: 63.5 kg

DRUGS (5)
  1. METOPROLOL [Concomitant]
     Active Substance: METOPROLOL
     Indication: CARDIAC DISORDER
     Route: 065
     Dates: start: 2015
  2. LORAZEPAM. [Concomitant]
     Active Substance: LORAZEPAM
     Indication: SLEEP DISORDER
  3. SPIRONOLACTONE + HCTZ [Concomitant]
     Indication: DIURETIC THERAPY
     Route: 065
     Dates: start: 1972
  4. TYLENOL EXTRA STRENGTH [Suspect]
     Active Substance: ACETAMINOPHEN
     Indication: PAIN IN EXTREMITY
     Dosage: 2 CAPLETS
     Route: 048
     Dates: start: 20150326, end: 20150326
  5. SPIRONOLACTONE + HCTZ [Concomitant]
     Indication: HYPERTENSION
     Route: 065
     Dates: start: 1972

REACTIONS (1)
  - Dizziness [Recovered/Resolved]

NARRATIVE: CASE EVENT DATE: 20150326
